FAERS Safety Report 21324128 (Version 7)
Quarter: 2023Q2

REPORT INFORMATION
  Report Type: Report from Study
  Country: CN (occurrence: CN)
  Receive Date: 20220912
  Receipt Date: 20230620
  Transmission Date: 20230721
  Serious: Yes (Hospitalization, Other)
  Sender: FDA-Public Use
  Company Number: CN-TAKEDA-2022TUS045166

PATIENT
  Age: 32 Year
  Sex: Female
  Weight: 46 kg

DRUGS (52)
  1. VEDOLIZUMAB [Suspect]
     Active Substance: VEDOLIZUMAB
     Indication: Colitis ulcerative
     Dosage: 300 MILLIGRAM
     Route: 042
     Dates: start: 20220625, end: 20220913
  2. BICYCLOL [Concomitant]
     Active Substance: BICYCLOL
     Indication: Prophylaxis
     Dosage: 25 MILLIGRAM, TID
     Route: 048
     Dates: start: 20220615, end: 20220627
  3. METHYLPREDNISOLONE SODIUM SUCCINATE [Concomitant]
     Active Substance: METHYLPREDNISOLONE SODIUM SUCCINATE
     Indication: Antiinflammatory therapy
     Dosage: 40 MILLIGRAM
     Dates: start: 20220618, end: 20220627
  4. IRON SUCROSE [Concomitant]
     Active Substance: IRON SUCROSE
     Indication: Supplementation therapy
     Dosage: 100 MILLIGRAM, QOD
     Route: 042
     Dates: start: 20220623, end: 20220627
  5. IRON SUCROSE [Concomitant]
     Active Substance: IRON SUCROSE
     Indication: Anaemia
     Dosage: 100 MILLIGRAM, QOD
     Route: 042
     Dates: start: 20220705, end: 20220708
  6. OMEPRAZOLE SODIUM [Concomitant]
     Active Substance: OMEPRAZOLE SODIUM
     Indication: Prophylaxis
     Dosage: 40 MILLIGRAM, QD
     Dates: start: 20220625, end: 20220626
  7. ILAPRAZOLE [Concomitant]
     Active Substance: ILAPRAZOLE
     Indication: Prophylaxis
     Dosage: 5 MILLIGRAM, QD
     Route: 048
     Dates: start: 20220626, end: 20220627
  8. BACILLUS LICHENIFORMIS CAPSULE,LIVE [Concomitant]
     Indication: Dysbiosis
     Dosage: 0.5 GRAM, TID
     Route: 048
     Dates: start: 20220627
  9. Compound glutamine [Concomitant]
     Indication: Gastrointestinal disorder
     Dosage: UNK UNK, TID
     Route: 048
     Dates: start: 20220614
  10. CALCITRIOL [Concomitant]
     Active Substance: CALCITRIOL
     Indication: Osteoporosis prophylaxis
     Dosage: UNK UNK, QD
     Route: 048
     Dates: start: 20220616
  11. CLOSTRIDIUM BUTYRICUM SPORES STRAIN M-55 [Concomitant]
     Active Substance: CLOSTRIDIUM BUTYRICUM SPORES STRAIN M-55
     Indication: Dysbiosis
     Dosage: 40 MILLIGRAM, TID
     Route: 048
     Dates: start: 20220616, end: 20220627
  12. CLOSTRIDIUM BUTYRICUM SPORES STRAIN M-55 [Concomitant]
     Active Substance: CLOSTRIDIUM BUTYRICUM SPORES STRAIN M-55
     Dosage: UNK UNK, TID
     Route: 048
     Dates: start: 20220902
  13. Levornidazole and sodium chloride [Concomitant]
     Indication: Antiinflammatory therapy
     Dosage: 0.5 GRAM, BID
     Dates: start: 20220616, end: 20220627
  14. FOLIC ACID [Concomitant]
     Active Substance: FOLIC ACID
     Indication: Haemoglobin decreased
     Dosage: 5 MILLIGRAM
     Route: 048
     Dates: start: 20220619, end: 20220627
  15. FOLIC ACID [Concomitant]
     Active Substance: FOLIC ACID
     Indication: Anaemia
     Dosage: 5 MILLIGRAM, QD
     Route: 048
     Dates: start: 20220907
  16. MESALAMINE [Concomitant]
     Active Substance: MESALAMINE
     Indication: Inflammatory bowel disease
     Dosage: 1 GRAM
     Route: 054
     Dates: start: 20220620, end: 20220627
  17. MESALAMINE [Concomitant]
     Active Substance: MESALAMINE
     Dosage: 1 GRAM, TID
     Route: 048
     Dates: start: 20220702, end: 20220901
  18. DEXAMETHASONE SODIUM PHOSPHATE [Concomitant]
     Active Substance: DEXAMETHASONE SODIUM PHOSPHATE
     Indication: Inflammatory bowel disease
     Dosage: 5 MILLIGRAM
     Route: 054
     Dates: start: 20220620, end: 20220627
  19. DEXAMETHASONE SODIUM PHOSPHATE [Concomitant]
     Active Substance: DEXAMETHASONE SODIUM PHOSPHATE
     Dosage: 5 MILLIGRAM, QD
     Route: 054
     Dates: start: 20220703, end: 20220807
  20. PROMETHAZINE HYDROCHLORIDE [Concomitant]
     Active Substance: PROMETHAZINE HYDROCHLORIDE
     Indication: Antiallergic therapy
     Dosage: 25 MILLIGRAM, QOD
     Route: 030
     Dates: start: 20220623, end: 20220627
  21. PROMETHAZINE HYDROCHLORIDE [Concomitant]
     Active Substance: PROMETHAZINE HYDROCHLORIDE
     Dosage: 25 MILLIGRAM, QOD
     Route: 030
     Dates: start: 20220705, end: 20220708
  22. PROMETHAZINE HYDROCHLORIDE [Concomitant]
     Active Substance: PROMETHAZINE HYDROCHLORIDE
     Dosage: 25 MILLIGRAM, QD
     Dates: start: 20220906, end: 20220906
  23. PREDNISONE ACETATE [Concomitant]
     Active Substance: PREDNISONE ACETATE
     Indication: Inflammatory bowel disease
     Dosage: 50 MILLIGRAM, QD
     Route: 048
     Dates: start: 20220703, end: 20220708
  24. PREDNISONE ACETATE [Concomitant]
     Active Substance: PREDNISONE ACETATE
     Dosage: 15 MILLIGRAM, TID
     Route: 048
     Dates: start: 20220709, end: 20220803
  25. PREDNISONE ACETATE [Concomitant]
     Active Substance: PREDNISONE ACETATE
     Dosage: 35 MILLIGRAM, QD
     Route: 048
     Dates: start: 20220804, end: 20220807
  26. PREDNISONE ACETATE [Concomitant]
     Active Substance: PREDNISONE ACETATE
     Dosage: 15 MILLIGRAM, QD
     Route: 048
     Dates: start: 20220902, end: 20220906
  27. ESOMEPRAZOLE MAGNESIUM [Concomitant]
     Active Substance: ESOMEPRAZOLE MAGNESIUM
     Indication: Chronic gastritis
     Dosage: 20 MILLIGRAM, QD
     Route: 048
     Dates: start: 20220804
  28. LIDOCAINE HYDROCHLORIDE [Concomitant]
     Active Substance: LIDOCAINE HYDROCHLORIDE
     Indication: Inflammatory bowel disease
     Dosage: 0.1 GRAM, QD
     Route: 054
     Dates: start: 20220620, end: 20220627
  29. LIDOCAINE HYDROCHLORIDE [Concomitant]
     Active Substance: LIDOCAINE HYDROCHLORIDE
     Indication: Tracheoscopy
     Dosage: 0.1 GRAM, QD
     Route: 054
     Dates: start: 20220804, end: 20220807
  30. LIDOCAINE HYDROCHLORIDE [Concomitant]
     Active Substance: LIDOCAINE HYDROCHLORIDE
     Dosage: 0.6 GRAM
     Dates: start: 20220905, end: 20220905
  31. TEPRENONE [Concomitant]
     Active Substance: TEPRENONE
     Indication: Inflammatory bowel disease
     Dosage: 50 MILLIGRAM, TID
     Route: 048
     Dates: start: 20220804, end: 20220901
  32. VITAMIN C [Concomitant]
     Active Substance: ASCORBIC ACID
     Indication: Nutritional supplementation
     Dosage: 2 GRAM, QD
     Dates: start: 20220804, end: 20220808
  33. VITAMIN C [Concomitant]
     Active Substance: ASCORBIC ACID
     Dosage: 1 GRAM, QD
     Dates: start: 20220905, end: 20220905
  34. VITAMIN C [Concomitant]
     Active Substance: ASCORBIC ACID
     Dosage: 2 GRAM, QD
     Dates: start: 20220906
  35. VITAMIN B6 [Concomitant]
     Active Substance: PYRIDOXINE HYDROCHLORIDE
     Indication: Nutritional supplementation
     Dosage: 200 MILLIGRAM, QD
     Dates: start: 20220804, end: 20220807
  36. VITAMIN B6 [Concomitant]
     Active Substance: PYRIDOXINE HYDROCHLORIDE
     Dosage: 200 MILLIGRAM, QD
     Dates: start: 20220906, end: 20220914
  37. VITAMIN B6 [Concomitant]
     Active Substance: PYRIDOXINE HYDROCHLORIDE
     Dosage: 100 MILLIGRAM, QD
     Dates: start: 20220905, end: 20220905
  38. VITAMIN B6 [Concomitant]
     Active Substance: PYRIDOXINE HYDROCHLORIDE
     Dosage: 200 MILLIGRAM, QD
     Dates: start: 20220906
  39. POTASSIUM CHLORIDE [Concomitant]
     Active Substance: POTASSIUM CHLORIDE
     Indication: Mineral supplementation
     Dosage: 10 MILLILITER, QD
     Dates: start: 20220804, end: 20220807
  40. POTASSIUM CHLORIDE [Concomitant]
     Active Substance: POTASSIUM CHLORIDE
     Dosage: 10 MILLILITER, QD
     Dates: start: 20220905, end: 20220905
  41. POTASSIUM CHLORIDE [Concomitant]
     Active Substance: POTASSIUM CHLORIDE
     Dosage: 30 MILLILITER, QD
     Dates: start: 20220906, end: 20220906
  42. POTASSIUM CHLORIDE [Concomitant]
     Active Substance: POTASSIUM CHLORIDE
     Dosage: 10 MILLILITER, QD
     Dates: start: 20220907
  43. POTASSIUM CHLORIDE [Concomitant]
     Active Substance: POTASSIUM CHLORIDE
     Dosage: 20 MILLILITER, QD
     Route: 048
     Dates: start: 20220911, end: 20220911
  44. SUCRALFATE [Concomitant]
     Active Substance: SUCRALFATE
     Indication: Inflammatory bowel disease
     Dosage: 10 MILLILITER, TID
     Route: 048
     Dates: start: 20220826, end: 20220901
  45. CALCIUM CARBONATE\CHOLECALCIFEROL [Concomitant]
     Active Substance: CALCIUM CARBONATE\CHOLECALCIFEROL
     Indication: Mineral supplementation
     Dosage: 0.6 GRAM, QD
     Route: 048
     Dates: start: 20220904, end: 20220906
  46. POTASSIUM CITRATE [Concomitant]
     Active Substance: POTASSIUM CITRATE
     Indication: Mineral supplementation
     Dosage: 100 MILLILITER, QD
     Route: 048
     Dates: start: 20220903, end: 20220903
  47. POTASSIUM CITRATE [Concomitant]
     Active Substance: POTASSIUM CITRATE
     Dosage: 20 MILLILITER, QD
     Route: 048
     Dates: start: 20220904, end: 20220905
  48. SODIUM BICARBONATE [Concomitant]
     Active Substance: SODIUM BICARBONATE
     Indication: Chronic gastritis
     Dosage: 0.5 GRAM, TID
     Route: 048
     Dates: start: 20220906
  49. MESALAMINE [Concomitant]
     Active Substance: MESALAMINE
     Indication: Inflammatory bowel disease
     Dosage: UNK
     Dates: start: 20211202
  50. ALBUMIN HUMAN [Concomitant]
     Active Substance: ALBUMIN HUMAN
     Indication: Supplementation therapy
     Dosage: 10 GRAM, QD
     Dates: start: 20220903, end: 20220903
  51. ALBUMIN HUMAN [Concomitant]
     Active Substance: ALBUMIN HUMAN
     Dosage: 10 GRAM, QD
     Dates: start: 20220905, end: 20220905
  52. CODEINE PHOSPHATE [Concomitant]
     Active Substance: CODEINE PHOSPHATE
     Indication: Local anaesthesia
     Dosage: 60 MILLIGRAM, QD
     Route: 048
     Dates: start: 20220905, end: 20220905

REACTIONS (2)
  - Pneumocystis jirovecii infection [Not Recovered/Not Resolved]
  - Lower gastrointestinal haemorrhage [Recovered/Resolved]

NARRATIVE: CASE EVENT DATE: 20220702
